FAERS Safety Report 13176928 (Version 1)
Quarter: 2017Q1

REPORT INFORMATION
  Report Type: Spontaneous
  Country: GB (occurrence: GB)
  Receive Date: 20170201
  Receipt Date: 20170201
  Transmission Date: 20170428
  Serious: Yes (Hospitalization, Other)
  Sender: FDA-Public Use
  Company Number: GB-ABBVIE-17P-167-1858068-00

PATIENT

DRUGS (2)
  1. HUMIRA [Suspect]
     Active Substance: ADALIMUMAB
     Indication: PSORIASIS
     Route: 058
  2. HUMIRA [Suspect]
     Active Substance: ADALIMUMAB
     Route: 058
     Dates: start: 20161205

REACTIONS (7)
  - Inflammatory marker increased [Recovering/Resolving]
  - Lymphadenopathy [Unknown]
  - Streptococcus test positive [Unknown]
  - Cellulitis [Recovering/Resolving]
  - Erythrodermic psoriasis [Unknown]
  - Pyrexia [Unknown]
  - Erythema [Unknown]
